FAERS Safety Report 8503915-8 (Version None)
Quarter: 2012Q3

REPORT INFORMATION
  Report Type: 
  Country: None (occurrence: None)
  Receive Date: 20120711
  Receipt Date: 20120706
  Transmission Date: 20120928
  Serious: Yes (Life-Threatening)
  Sender: FDA-Public Use
  Company Number: JP-BRISTOL-MYERS SQUIBB COMPANY-16659575

PATIENT
  Age: 59 Year
  Sex: Female
  Weight: 48 kg

DRUGS (8)
  1. ESTAZOLAM [Concomitant]
     Dosage: TAB
     Dates: start: 20110210
  2. RABEPRAZOLE SODIUM [Concomitant]
     Dosage: TAB
  3. MAGMITT [Concomitant]
     Dosage: TAB
     Dates: start: 20120522
  4. LIPITOR [Concomitant]
     Dosage: TAB
  5. NERIPROCT [Concomitant]
     Dates: start: 20120528
  6. ABILIFY [Suspect]
     Indication: BIPOLAR DISORDER
     Dosage: ORODISPERSIBLE TABS
     Route: 048
     Dates: start: 20120514, end: 20120604
  7. BROTIZOLAM [Concomitant]
     Dosage: TAB
     Dates: start: 20110118
  8. ATARAX [Suspect]
     Indication: DRUG ERUPTION
     Dosage: TABS
     Route: 048
     Dates: start: 20120522, end: 20120529

REACTIONS (1)
  - ELECTROCARDIOGRAM QT PROLONGED [None]
